FAERS Safety Report 24535965 (Version 1)
Quarter: 2024Q4

REPORT INFORMATION
  Report Type: Spontaneous
  Country: ES (occurrence: ES)
  Receive Date: 20241022
  Receipt Date: 20241022
  Transmission Date: 20250115
  Serious: Yes (Life-Threatening, Hospitalization)
  Sender: TEVA
  Company Number: None

PATIENT
  Age: 24 Year
  Sex: Female

DRUGS (3)
  1. TRAMADOL [Interacting]
     Active Substance: TRAMADOL
     Indication: Suicide attempt
     Dosage: TRAMADOL HIDROCLORURO (2389CH)
     Route: 048
     Dates: start: 20240805, end: 20240805
  2. MORPHINE [Interacting]
     Active Substance: MORPHINE
     Indication: Suicide attempt
     Dosage: TIME INTERVAL: TOTAL: MORFINA (1982A)
     Route: 048
     Dates: start: 20240805, end: 20240805
  3. MORPHINE SULFATE [Interacting]
     Active Substance: MORPHINE SULFATE
     Indication: Suicide attempt
     Dosage: TIME INTERVAL: TOTAL: 60 TABLETS
     Route: 048
     Dates: start: 20240805, end: 20240805

REACTIONS (2)
  - Depressed level of consciousness [Recovered/Resolved]
  - Generalised tonic-clonic seizure [Recovered/Resolved]

NARRATIVE: CASE EVENT DATE: 20240805
